APPROVED DRUG PRODUCT: METOCLOPRAMIDE HYDROCHLORIDE
Active Ingredient: METOCLOPRAMIDE HYDROCHLORIDE
Strength: EQ 5MG BASE/5ML
Dosage Form/Route: SOLUTION;ORAL
Application: A070949 | Product #001
Applicant: MORTON GROVE PHARMACEUTICALS INC
Approved: Mar 6, 1987 | RLD: No | RS: No | Type: DISCN